FAERS Safety Report 8985397 (Version 1)
Quarter: 2012Q4

REPORT INFORMATION
  Report Type: Report from Study
  Country: US (occurrence: US)
  Receive Date: 20121226
  Receipt Date: 20121226
  Transmission Date: 20130627
  Serious: No
  Sender: FDA-Public Use
  Company Number: US-ABBOTT-12P-163-0962768-00

PATIENT
  Sex: Male

DRUGS (1)
  1. LUPRON DEPOT 45 MG [Suspect]
     Indication: PROSTATE CANCER
     Dates: start: 201202

REACTIONS (3)
  - Feeling cold [Not Recovered/Not Resolved]
  - Hot flush [Not Recovered/Not Resolved]
  - Fatigue [Not Recovered/Not Resolved]
